FAERS Safety Report 11459176 (Version 2)
Quarter: 2016Q4

REPORT INFORMATION
  Report Type: Spontaneous
  Country: US (occurrence: US)
  Receive Date: 20150904
  Receipt Date: 20161103
  Transmission Date: 20170206
  Serious: No
  Sender: FDA-Public Use
  Company Number: US-PFIZER INC-2015293146

PATIENT
  Age: 49 Year
  Sex: Female

DRUGS (23)
  1. REVATIO [Suspect]
     Active Substance: SILDENAFIL CITRATE
     Indication: PULMONARY HYPERTENSION
     Dosage: 20 MG TABLETS TAKE 3 TABLETS THREE TIMES DAILY
     Route: 048
  2. PROAIR HFA [Concomitant]
     Active Substance: ALBUTEROL SULFATE
     Indication: WHEEZING
     Dosage: INHALE 2 PUFFS INTO THE LUNGS EVERY 6 HOURS AS NEEDED
     Route: 055
  3. ZITHROMAX [Concomitant]
     Active Substance: AZITHROMYCIN DIHYDRATE
     Dosage: TAKE TWO 250 MG TABLETS BY MOUTH ON THE FIRST DAY AND THEN ONE 250 MG TABLET ONCE DAILY BY MOUTH FOR
     Route: 048
  4. FLONASE [Concomitant]
     Active Substance: FLUTICASONE PROPIONATE
     Dosage: 50 MCG/ACTUATION NASAL SPRAY: USE 2 SPRAYS INTO EACH NOSTRIL DAILY
     Route: 045
  5. XYLOCAINE [Concomitant]
     Active Substance: LIDOCAINE HYDROCHLORIDE
     Dosage: 5% OINT: APPLY 1 G TOPICALLY DAILY
     Route: 061
  6. MAG-OX [Concomitant]
     Active Substance: MAGNESIUM OXIDE
     Dosage: 400 MG TABLET: TAKE ONE TABLET BY MOUTH DAILY
     Route: 048
  7. DELTASONE [Concomitant]
     Active Substance: PREDNISONE
     Dosage: 20 MG TABLET: TAKE 1 TABLET (20 MG TOTAL) BY MOUTH DAILY
     Route: 048
  8. RISPERDAL [Concomitant]
     Active Substance: RISPERIDONE
     Dosage: 2 MG TABLET: TAKE ONE TABLET BY MOUTH TWICE DAILY
     Route: 048
  9. TESSALON [Concomitant]
     Active Substance: BENZONATATE
     Indication: COUGH
     Dosage: 1 CAPSULE (100 MG TOTAL) BY MOUTH 3 TIMES A DAY AS NEEDED
     Route: 048
  10. ZANTAC [Concomitant]
     Active Substance: RANITIDINE HYDROCHLORIDE
     Dosage: 150 MG TABLET: TAKE TWO TABLETS BY MOUTH DAILY 30 MINUTES BEFORE EVENING MEAL.
     Route: 048
  11. INCRUSE ELLIPTA [Concomitant]
     Active Substance: UMECLIDINIUM BROMIDE
     Dosage: INHALE 1 PUFF INTO THE LUNGS DAILY
     Route: 055
  12. VOLTAREN [Concomitant]
     Active Substance: DICLOFENAC SODIUM
     Dosage: 75 MG, DAILY (TAKE 1 TABLET (75 MG TOTAL) BY MOUTH DAILY)
     Route: 048
  13. PROVENTIL [Concomitant]
     Active Substance: ALBUTEROL
     Indication: WHEEZING
     Dosage: INHALE 3MLS (2.5MG TOTAL) BY NEBULIZATION EVERY 6 HOURS AS NEEDED
     Route: 055
  14. NEXIUM [Concomitant]
     Active Substance: ESOMEPRAZOLE MAGNESIUM
     Dosage: 40 MG CAPSULE: TAKE ONE CAPSULE BY MOUTH TWICE A DAY BEFORE MEALS
     Route: 048
  15. SYNTHROID [Concomitant]
     Active Substance: LEVOTHYROXINE SODIUM
     Dosage: 75 MCG TABLET: TAKE ONE TABLET BY MOUTH DAILY
     Route: 048
  16. LEVOTHROID [Concomitant]
     Active Substance: LEVOTHYROXINE SODIUM
     Dosage: 75 MCG TABLET: TAKE ONE TABLET BY MOUTH DAILY
     Route: 048
  17. VITAMIN D2 [Concomitant]
     Active Substance: ERGOCALCIFEROL
     Dosage: 50,000 UNIT CAPSULE: TAKE ONE CAPSULE BY MOUTH EVERY 14 DAYS
     Route: 048
  18. BENTYL [Concomitant]
     Active Substance: DICYCLOMINE HYDROCHLORIDE
     Dosage: 20 MG TABLET: TAKE ONE TABLET BY MOUTH FOUR TIMES A DAY AS NEEDED
     Route: 048
  19. ZANAFLEX [Concomitant]
     Active Substance: TIZANIDINE HYDROCHLORIDE
     Dosage: 4 MG TABLET: TAKE ONE TABLET BY MOUTH EVERY 8 HOURS AS NEEDED
     Route: 048
  20. SELEXIPAG [Concomitant]
     Active Substance: SELEXIPAG
     Dosage: 1,000 MCG TAB: TAKE 1,000 MCG BY MOUTH 2 TIMES A DAY. TAKE WITH FOOD
     Route: 048
  21. LIPITOR [Concomitant]
     Active Substance: ATORVASTATIN CALCIUM
     Dosage: 20 MG TABLET: TAKE ONE TABLET BY MOUTH DAILY
     Route: 048
  22. NEURONTIN [Concomitant]
     Active Substance: GABAPENTIN
     Dosage: 600 MG TABLET: TAKE ONE AND HALF TABLET BY MOUTH THREE TIMES A DAY
     Route: 048
  23. ULTRAM [Concomitant]
     Active Substance: TRAMADOL HYDROCHLORIDE
     Indication: PAIN
     Dosage: 50 MG TABLET: TAKE 1 TABLET (50 MG TOTAL) BY MOUTH EVERY 8 HOURS AS NEEDED
     Route: 048

REACTIONS (4)
  - Malaise [Unknown]
  - Nasopharyngitis [Unknown]
  - Influenza [Unknown]
  - Product use issue [Unknown]
